FAERS Safety Report 19665206 (Version 2)
Quarter: 2021Q3

REPORT INFORMATION
  Report Type: Spontaneous
  Country: US (occurrence: US)
  Receive Date: 20210805
  Receipt Date: 20210805
  Transmission Date: 20211014
  Serious: No
  Sender: FDA-Public Use
  Company Number: US-ROCHE-2798863

PATIENT
  Sex: Female

DRUGS (2)
  1. PRALSETINIB. [Suspect]
     Active Substance: PRALSETINIB
     Indication: THYROID CANCER
     Route: 048
     Dates: start: 20210301
  2. BIOTIN [Concomitant]
     Active Substance: BIOTIN

REACTIONS (1)
  - Dry mouth [Unknown]
